FAERS Safety Report 9462895 (Version 1)
Quarter: 2013Q3

REPORT INFORMATION
  Report Type: Spontaneous
  Country: TR (occurrence: None)
  Receive Date: 20130814
  Receipt Date: 20130814
  Transmission Date: 20140515
  Serious: Yes (Disabling, Other)
  Sender: FDA-Public Use
  Company Number: 2013P1016870

PATIENT
  Age: 3 Year
  Sex: Male

DRUGS (1)
  1. METRONIDAZOLE [Suspect]
     Indication: AMOEBIC DYSENTERY

REACTIONS (6)
  - Blindness [None]
  - Ataxia [None]
  - Dizziness [None]
  - Vertigo [None]
  - Headache [None]
  - Romberg test positive [None]
